FAERS Safety Report 7253866-4 (Version None)
Quarter: 2011Q1

REPORT INFORMATION
  Report Type: 
  Country: None (occurrence: None)
  Receive Date: 20110129
  Receipt Date: 20100426
  Transmission Date: 20110831
  Serious: No
  Sender: FDA-Public Use
  Company Number: US-ABBOTT-10P-163-0640875-00

PATIENT
  Sex: Female

DRUGS (4)
  1. HUMIRA [Suspect]
     Dates: start: 20100301, end: 20100301
  2. HUMIRA [Suspect]
     Dates: start: 20100301
  3. VITAMIN D [Concomitant]
     Indication: VITAMIN SUPPLEMENTATION
  4. HUMIRA [Suspect]
     Indication: CROHN'S DISEASE
     Dates: start: 20100201

REACTIONS (4)
  - WEIGHT INCREASED [None]
  - RASH PRURITIC [None]
  - INCORRECT DOSE ADMINISTERED [None]
  - RASH ERYTHEMATOUS [None]
